FAERS Safety Report 8334839-7 (Version None)
Quarter: 2012Q2

REPORT INFORMATION
  Report Type: 
  Country: None (occurrence: None)
  Receive Date: 20120503
  Receipt Date: 20120427
  Transmission Date: 20120825
  Serious: Yes (Hospitalization)
  Sender: FDA-Public Use
  Company Number: US-BAYER-2011-052514

PATIENT
  Age: 37 Year
  Sex: Female
  Weight: 61.678 kg

DRUGS (10)
  1. FLUTICASONE FUROATE [Concomitant]
  2. OXYCODONE HCL [Concomitant]
  3. FLONASE [Concomitant]
  4. HYDROCODONE BITARTRATE AND ACETAMINOPHEN [Concomitant]
  5. LEVAQUIN [Concomitant]
     Dosage: UNK
     Dates: start: 20090422
  6. PROMETHAZINE [Concomitant]
  7. RITALIN [Concomitant]
  8. TRAZODONE HCL [Concomitant]
  9. YAZ [Suspect]
     Indication: PREMENSTRUAL SYNDROME
     Dosage: UNK
     Dates: start: 20080701, end: 20100101
  10. AMOXICILLIN [Concomitant]

REACTIONS (6)
  - PAIN [None]
  - BILIARY COLIC [None]
  - INJURY [None]
  - CHOLECYSTITIS CHRONIC [None]
  - GALLBLADDER DISORDER [None]
  - ABDOMINAL PAIN [None]
